FAERS Safety Report 9920126 (Version 3)
Quarter: 2014Q2

REPORT INFORMATION
  Report Type: Spontaneous
  Country: US (occurrence: US)
  Receive Date: 20140224
  Receipt Date: 20140411
  Transmission Date: 20141212
  Serious: Yes (Hospitalization)
  Sender: FDA-Public Use
  Company Number: US-UCBSA-111256

PATIENT
  Age: 67 Year
  Sex: Male
  Weight: 61.2 kg

DRUGS (10)
  1. NEUPRO [Suspect]
     Indication: PARKINSON^S DISEASE
     Dosage: TOTAL DAILY DOSE 8MG
     Route: 062
  2. NEUPRO [Suspect]
     Indication: PARKINSON^S DISEASE
     Dosage: 3 MG
  3. NEUPRO [Suspect]
     Indication: PARKINSON^S DISEASE
     Route: 062
  4. CARBADOPA/LEVADOPA [Concomitant]
     Indication: PARKINSON^S DISEASE
     Dosage: STRENGTH: 25/100, 1 1/2 TABLETS
     Route: 048
  5. GABAPENTIN [Concomitant]
     Indication: NEUROPATHY PERIPHERAL
     Dosage: 300 MG ONCE IN A DAY AND AT BEDTIME A 400MG
     Route: 048
  6. OMEPRAZALE [Concomitant]
     Indication: HYPERCHLORHYDRIA
     Route: 048
  7. LORAZAPEM [Concomitant]
     Indication: ANXIETY
     Dosage: 1 TABLET THREE TIMES IN A DAY PRN
     Route: 048
  8. BABY ASA [Concomitant]
     Indication: ANTICOAGULANT THERAPY
     Route: 048
  9. CLOPIDAGRIL [Concomitant]
     Indication: CEREBROVASCULAR ACCIDENT PROPHYLAXIS
     Route: 048
  10. SIMVASTATIN [Concomitant]
     Indication: HYPERCHOLESTEROLAEMIA
     Route: 048

REACTIONS (3)
  - Chest pain [Recovered/Resolved]
  - Tremor [Recovered/Resolved]
  - Malaise [Not Recovered/Not Resolved]
